FAERS Safety Report 23522996 (Version 1)
Quarter: 2024Q1

REPORT INFORMATION
  Report Type: Spontaneous
  Country: US (occurrence: None)
  Receive Date: 20240214
  Receipt Date: 20240214
  Transmission Date: 20240410
  Serious: No
  Sender: FDA-Public Use
  Company Number: None

PATIENT
  Age: 53 Year
  Sex: Female
  Weight: 136.08 kg

DRUGS (1)
  1. SKYRIZI [Suspect]
     Active Substance: RISANKIZUMAB-RZAA
     Indication: Psoriasis
     Dosage: INJECT 150MG SUBCUTANEOUSLY  EVERY 12 WEEKS AS DIRECTED.?
     Route: 058
     Dates: start: 202002

REACTIONS (3)
  - Procedural complication [None]
  - Nerve injury [None]
  - Diaphragmatic paralysis [None]
